FAERS Safety Report 8107263-X (Version None)
Quarter: 2012Q1

REPORT INFORMATION
  Report Type: 
  Country: None (occurrence: None)
  Receive Date: 20120202
  Receipt Date: 20120124
  Transmission Date: 20120608
  Serious: Yes (Hospitalization)
  Sender: FDA-Public Use
  Company Number: FR-BAYER-2011-109585

PATIENT
  Age: 77 Year
  Sex: Female

DRUGS (14)
  1. ACARBOSE [Suspect]
     Dosage: 50 MG, QD
     Route: 048
     Dates: end: 20110606
  2. BUMETANIDE [Concomitant]
  3. CORDARONE [Concomitant]
  4. LASIX [Suspect]
     Dosage: UNK
     Dates: end: 20110610
  5. ATACAND HCT [Suspect]
     Dosage: 8 MG, QD
     Route: 048
     Dates: end: 20110606
  6. MINISINTROM [Concomitant]
     Dosage: UNK
     Dates: end: 20110608
  7. PARAFFIN [Concomitant]
  8. ALLOPURINOL [Concomitant]
     Dosage: UNK
     Dates: end: 20110610
  9. BISOPROLOL FUMARATE [Concomitant]
  10. KAYEXALATE [Concomitant]
     Indication: ELECTROLYTE IMBALANCE
  11. SODIUM BICARBONATE [Concomitant]
     Indication: ELECTROLYTE IMBALANCE
  12. CALCIPARINE [Concomitant]
     Route: 058
  13. LASIX [Suspect]
     Dosage: 20 MG, QD
     Route: 048
     Dates: end: 20110606
  14. FENOFIBRATE [Suspect]
     Dosage: 200 MG, QD
     Route: 048
     Dates: end: 20110606

REACTIONS (1)
  - RENAL FAILURE ACUTE [None]
